FAERS Safety Report 6680728-3 (Version None)
Quarter: 2010Q2

REPORT INFORMATION
  Report Type: 
  Country: None (occurrence: None)
  Receive Date: 20100414
  Receipt Date: 20100406
  Transmission Date: 20101027
  Serious: No
  Sender: FDA-Public Use
  Company Number: PHEH2010US02090

PATIENT
  Sex: Male
  Weight: 66.077 kg

DRUGS (9)
  1. AFINITOR [Suspect]
     Indication: RENAL CELL CARCINOMA
     Dosage: 10 MG, QD
     Route: 048
     Dates: start: 20100113
  2. FISH OIL [Concomitant]
     Dosage: 1400-1500 DHA DAILY
  3. LORAZEPAM [Concomitant]
     Indication: SLEEP DISORDER
     Dosage: 0.5 MG, UNK
  4. MIRALAX [Concomitant]
     Dosage: UNK
  5. PEPCID COMPLETE [Concomitant]
  6. PRILOSEC [Concomitant]
  7. PROBIOTICS (MICROORGANISMS W/PROBIOTIC ACTION) [Concomitant]
  8. TYLENOL-500 [Concomitant]
     Dosage: UNK
  9. VITAMINS [Concomitant]

REACTIONS (13)
  - APHTHOUS STOMATITIS [None]
  - BLOOD BICARBONATE [None]
  - BLOOD CREATININE INCREASED [None]
  - BLOOD GLUCOSE INCREASED [None]
  - BLOOD UREA INCREASED [None]
  - FLANK PAIN [None]
  - GLOMERULAR FILTRATION RATE DECREASED [None]
  - HAEMATOCRIT DECREASED [None]
  - HAEMOGLOBIN DECREASED [None]
  - PLATELET COUNT DECREASED [None]
  - RED BLOOD CELL COUNT DECREASED [None]
  - WEIGHT DECREASED [None]
  - WHITE BLOOD CELL COUNT DECREASED [None]
